FAERS Safety Report 7035581-5 (Version None)
Quarter: 2010Q4

REPORT INFORMATION
  Report Type: 
  Country: None (occurrence: None)
  Receive Date: 20101008
  Receipt Date: 20101001
  Transmission Date: 20110411
  Serious: Yes (Hospitalization, Other)
  Sender: FDA-Public Use
  Company Number: US-PFIZER INC-2010095338

PATIENT
  Sex: Male

DRUGS (4)
  1. CHANTIX [Suspect]
     Indication: SMOKING CESSATION THERAPY
     Dosage: STATER PAK 1 MG
     Dates: start: 20071016, end: 20071101
  2. PLAVIX [Concomitant]
     Dosage: UNK
     Dates: start: 20060901, end: 20071201
  3. METOPROLOL [Concomitant]
     Dosage: UNK
     Dates: start: 20070301, end: 20071201
  4. BUPROPION [Concomitant]
     Dosage: UNK
     Dates: start: 20071001, end: 20071101

REACTIONS (6)
  - AGGRESSION [None]
  - AGITATION [None]
  - AMNESIA [None]
  - CEREBROVASCULAR ACCIDENT [None]
  - CONFUSIONAL STATE [None]
  - SUICIDE ATTEMPT [None]
